FAERS Safety Report 25231832 (Version 1)
Quarter: 2025Q2

REPORT INFORMATION
  Report Type: Spontaneous
  Country: FI (occurrence: FI)
  Receive Date: 20250423
  Receipt Date: 20250423
  Transmission Date: 20250716
  Serious: Yes (Death)
  Sender: B BRAUN
  Company Number: FI-B.Braun Medical Inc.-2175494

PATIENT
  Age: 59 Year
  Sex: Female

DRUGS (7)
  1. SODIUM CHLORIDE [Suspect]
     Active Substance: SODIUM CHLORIDE
     Dates: start: 20170309, end: 20250219
  2. RITUXIMAB [Suspect]
     Active Substance: RITUXIMAB
  3. VENLAFAXINE [Concomitant]
     Active Substance: VENLAFAXINE HYDROCHLORIDE
  4. SERTRALINE [Concomitant]
     Active Substance: SERTRALINE HYDROCHLORIDE
  5. CLONAZEPAM [Concomitant]
     Active Substance: CLONAZEPAM
  6. ASPIRIN [Concomitant]
     Active Substance: ASPIRIN
  7. Donepezil Krka [Concomitant]

REACTIONS (1)
  - Organising pneumonia [Fatal]
